FAERS Safety Report 10364852 (Version 1)
Quarter: 2014Q3

REPORT INFORMATION
  Report Type: Other
  Country: IT (occurrence: IT)
  Receive Date: 20140806
  Receipt Date: 20140806
  Transmission Date: 20150326
  Serious: Yes (Hospitalization)
  Sender: FDA-Public Use
  Company Number: IT-MYLAN-2014M1000277

PATIENT

DRUGS (2)
  1. CISPLATINO TEVA [Suspect]
     Active Substance: CISPLATIN
     Indication: OVARIAN CANCER
     Dosage: 120 MG CYCLICAL
     Route: 042
     Dates: start: 20140523, end: 20140613
  2. PACLITAXEL MYLAN GENERICS [Suspect]
     Active Substance: PACLITAXEL
     Dosage: 280 MG CYCLICAL
     Route: 042
     Dates: start: 20140523, end: 20140613

REACTIONS (6)
  - Palpitations [Recovered/Resolved]
  - Dyspnoea [Recovered/Resolved]
  - Abdominal pain [Recovered/Resolved]
  - Back pain [Recovered/Resolved]
  - Erythema [Recovered/Resolved]
  - Vomiting [Recovered/Resolved]

NARRATIVE: CASE EVENT DATE: 20140613
